FAERS Safety Report 11777575 (Version 2)
Quarter: 2016Q1

REPORT INFORMATION
  Report Type: Spontaneous
  Country: CO (occurrence: CO)
  Receive Date: 20151125
  Receipt Date: 20160111
  Transmission Date: 20160525
  Serious: Yes (Hospitalization, Other)
  Sender: FDA-Public Use
  Company Number: ALCN2015CO007377

PATIENT
  Age: 72 Year
  Sex: Male

DRUGS (3)
  1. NEVANAC [Suspect]
     Active Substance: NEPAFENAC
     Dosage: 1 GTT, Q8H
     Route: 047
  2. PRED-F [Concomitant]
     Indication: POSTOPERATIVE CARE
     Dosage: UNK GTT, Q8H
     Route: 047
  3. NEVANAC [Suspect]
     Active Substance: NEPAFENAC
     Indication: POSTOPERATIVE CARE
     Dosage: 1 GTT, Q4H
     Route: 047

REACTIONS (2)
  - Myocardial infarction [Recovering/Resolving]
  - Off label use [Recovering/Resolving]

NARRATIVE: CASE EVENT DATE: 20151117
